FAERS Safety Report 15440125 (Version 1)
Quarter: 2018Q3

REPORT INFORMATION
  Report Type: Spontaneous
  Country: US (occurrence: US)
  Receive Date: 20180928
  Receipt Date: 20180928
  Transmission Date: 20181010
  Serious: No
  Sender: FDA-Public Use
  Company Number: US-TEVA-2018-US-957533

PATIENT
  Sex: Female

DRUGS (2)
  1. ALVESCO [Concomitant]
     Active Substance: CICLESONIDE
  2. QVAR REDIHALER [Suspect]
     Active Substance: BECLOMETHASONE DIPROPIONATE
     Indication: HYPERSENSITIVITY
     Route: 065
     Dates: start: 20180910, end: 20180917

REACTIONS (3)
  - Dizziness [Unknown]
  - Fatigue [Unknown]
  - Hypersensitivity [Recovered/Resolved]

NARRATIVE: CASE EVENT DATE: 20180910
